FAERS Safety Report 6542438-2 (Version None)
Quarter: 2010Q1

REPORT INFORMATION
  Report Type: 
  Country: None (occurrence: None)
  Receive Date: 20100119
  Receipt Date: 20100108
  Transmission Date: 20100710
  Serious: Yes (Other)
  Sender: FDA-Public Use
  Company Number: US-JNJFOC-20100104720

PATIENT
  Sex: Female

DRUGS (2)
  1. TYLENOL (CAPLET) [Suspect]
     Route: 048
  2. TYLENOL (CAPLET) [Suspect]
     Indication: ARTHRITIS
     Dosage: TAKEN REGULARLY
     Route: 048

REACTIONS (2)
  - PRODUCT ODOUR ABNORMAL [None]
  - WHEEZING [None]
